FAERS Safety Report 4598746-8 (Version None)
Quarter: 2005Q1

REPORT INFORMATION
  Report Type: 
  Country: None (occurrence: None)
  Receive Date: 20050304
  Receipt Date: 20050223
  Transmission Date: 20050727
  Serious: Yes (Hospitalization)
  Sender: FDA-Public Use
  Company Number: F01200500324

PATIENT
  Age: 64 Year
  Sex: Male

DRUGS (3)
  1. FONDAPARINUX SODIUM [Suspect]
     Indication: ORTHOPEDIC PROCEDURE
     Dosage: 2.5MG PER DAY
     Route: 058
     Dates: start: 20040713
  2. ZINNAT [Concomitant]
  3. AUGMENTIN '125' [Concomitant]

REACTIONS (1)
  - POSTOPERATIVE INFECTION [None]
